FAERS Safety Report 9477527 (Version 1)
Quarter: 2013Q3

REPORT INFORMATION
  Report Type: Spontaneous
  Country: US (occurrence: US)
  Receive Date: 20130827
  Receipt Date: 20130827
  Transmission Date: 20140515
  Serious: Yes (Hospitalization)
  Sender: FDA-Public Use
  Company Number: US-AMGEN-USASP2013058921

PATIENT
  Age: 50 Year
  Sex: Female

DRUGS (2)
  1. ENBREL [Suspect]
     Indication: RHEUMATOID ARTHRITIS
     Dosage: 50 MG, QWK
     Route: 065
     Dates: start: 1998
  2. CELEBREX [Concomitant]
     Dosage: UNK

REACTIONS (9)
  - Vomiting [Recovered/Resolved]
  - Feeling abnormal [Recovered/Resolved]
  - Pain [Recovered/Resolved]
  - Blood creatine phosphokinase abnormal [Recovered/Resolved]
  - Hypotension [Recovered/Resolved]
  - Dyspnoea [Recovered/Resolved]
  - Upper respiratory tract infection [Recovered/Resolved]
  - Bronchitis [Recovered/Resolved]
  - Arthralgia [Not Recovered/Not Resolved]
